FAERS Safety Report 4339202-1 (Version None)
Quarter: 2004Q2

REPORT INFORMATION
  Report Type: 
  Country: None (occurrence: None)
  Receive Date: 20040412
  Receipt Date: 20040330
  Transmission Date: 20050107
  Serious: Yes (Other)
  Sender: FDA-Public Use
  Company Number: 2004021469

PATIENT
  Sex: Female
  Weight: 108.8633 kg

DRUGS (3)
  1. NEURONTIN [Suspect]
     Indication: NEURALGIA
     Dosage: 3200 MG (QID), ORAL
     Route: 048
  2. LISINOPRIL [Concomitant]
  3. GLIBENCLAMICE (GLIBENCLAMIDE) [Concomitant]

REACTIONS (3)
  - DYSGEUSIA [None]
  - OVARIAN CANCER [None]
  - PHARMACEUTICAL PRODUCT COMPLAINT [None]
